FAERS Safety Report 5360039-9 (Version None)
Quarter: 2007Q2

REPORT INFORMATION
  Report Type: 
  Country: None (occurrence: None)
  Receive Date: 20070614
  Receipt Date: 20070606
  Transmission Date: 20071010
  Serious: Yes (Hospitalization)
  Sender: FDA-Public Use
  Company Number: 2007AL002280

PATIENT
  Age: 94 Year
  Sex: Female

DRUGS (11)
  1. TRAZODONE HCL [Suspect]
     Dosage: UNKNOWN; PO
     Route: 048
     Dates: start: 20031001, end: 20041201
  2. METFORMIN HCL [Concomitant]
  3. DIGOXIN [Concomitant]
  4. SENNA [Concomitant]
  5. SEROQUEL [Concomitant]
  6. FUROSEMIDE [Concomitant]
  7. LISINOPRIL [Concomitant]
  8. NITROFURANTOIN [Concomitant]
  9. CRANBERRY CAPSULE [Concomitant]
  10. ASCORBIC ACID [Concomitant]
  11. MULTIVITAMIN FOR ADULTS [Concomitant]

REACTIONS (12)
  - ABNORMAL BEHAVIOUR [None]
  - ACUTE RESPIRATORY DISTRESS SYNDROME [None]
  - ANXIETY [None]
  - BRAIN DAMAGE [None]
  - CARDIAC DISORDER [None]
  - CHOKING [None]
  - FALL [None]
  - FEAR [None]
  - HIP FRACTURE [None]
  - PARANOIA [None]
  - SCREAMING [None]
  - UPPER LIMB FRACTURE [None]
